FAERS Safety Report 8746242 (Version 3)
Quarter: 2013Q1

REPORT INFORMATION
  Report Type: Spontaneous
  Country: US (occurrence: US)
  Receive Date: 20120827
  Receipt Date: 20130215
  Transmission Date: 20140127
  Serious: Yes (Other)
  Sender: FDA-Public Use
  Company Number: US-JNJFOC-20120809885

PATIENT
  Age: 50 None
  Sex: Female
  Weight: 62.6 kg

DRUGS (10)
  1. SANDOZ FENTANYL TRANSDERMAL SYSTEM [Suspect]
     Indication: PAIN
     Dosage: NDC# 0781-7243-55
     Route: 062
     Dates: start: 2009
  2. PERCOCET [Concomitant]
     Indication: PAIN
     Route: 048
     Dates: start: 2009
  3. AN UNKNOWN MEDICATION [Concomitant]
     Indication: HEADACHE
     Route: 048
     Dates: start: 1997
  4. LANTUS [Concomitant]
     Indication: DIABETES MELLITUS
     Route: 058
  5. NOVOLOG [Concomitant]
     Indication: DIABETES MELLITUS
     Route: 058
  6. PREMARIN [Concomitant]
     Indication: HORMONE REPLACEMENT THERAPY
     Route: 048
  7. AN UNKNOWN MEDICATION [Concomitant]
     Indication: BLOOD CHOLESTEROL INCREASED
     Route: 048
  8. ZOLOFT [Concomitant]
     Indication: NERVOUS SYSTEM DISORDER
     Route: 048
  9. ZYRTEC [Concomitant]
     Indication: SINUS DISORDER
     Route: 048
     Dates: start: 2007
  10. XANAX [Concomitant]
     Indication: DEPRESSION
     Route: 048
     Dates: start: 2011

REACTIONS (7)
  - Sensory loss [Not Recovered/Not Resolved]
  - Cerebrovascular accident [Unknown]
  - Fall [Unknown]
  - Upper limb fracture [Unknown]
  - Gastrointestinal disorder [Not Recovered/Not Resolved]
  - Drug ineffective [Recovered/Resolved]
  - Product quality issue [Unknown]
